FAERS Safety Report 13033682 (Version 1)
Quarter: 2016Q4

REPORT INFORMATION
  Report Type: Spontaneous
  Country: IT (occurrence: IT)
  Receive Date: 20161216
  Receipt Date: 20161216
  Transmission Date: 20170207
  Serious: Yes (Hospitalization)
  Sender: FDA-Public Use
  Company Number: IT-VELOXIS PHARMACEUTICALS-1060894

PATIENT
  Age: 66 Year
  Sex: Female
  Weight: 67 kg

DRUGS (14)
  1. VASEXTEN [Concomitant]
     Active Substance: BARNIDIPINE HYDROCHLORIDE
  2. XANAX [Concomitant]
     Active Substance: ALPRAZOLAM
  3. CATAPRESAN [Concomitant]
     Active Substance: CLONIDINE
  4. CARDIOASPIRIN [Concomitant]
     Active Substance: ASPIRIN
  5. ENVARSUS XR [Suspect]
     Active Substance: TACROLIMUS
     Indication: PROPHYLAXIS AGAINST TRANSPLANT REJECTION
     Route: 048
     Dates: start: 20160830, end: 20161125
  6. DELTACORTENE [Suspect]
     Active Substance: PREDNISONE
     Route: 048
     Dates: start: 20160830, end: 20161125
  7. CONGESCOR [Concomitant]
     Active Substance: BISOPROLOL
  8. VENITRIN [Concomitant]
     Active Substance: NITROGLYCERIN
  9. NEXIUM [Concomitant]
     Active Substance: ESOMEPRAZOLE MAGNESIUM
  10. LASIX [Concomitant]
     Active Substance: FUROSEMIDE
  11. MYFENAX [Suspect]
     Active Substance: MYCOPHENOLATE MOFETIL
     Route: 048
     Dates: start: 20160830, end: 20161125
  12. EUTIROX [Concomitant]
     Active Substance: LEVOTHYROXINE SODIUM
  13. ISMO [Concomitant]
     Active Substance: ISOSORBIDE MONONITRATE
  14. ZYLORIC [Concomitant]
     Active Substance: ALLOPURINOL

REACTIONS (3)
  - Toxicity to various agents [Not Recovered/Not Resolved]
  - Chronic allograft nephropathy [Not Recovered/Not Resolved]
  - Blood creatinine increased [Not Recovered/Not Resolved]

NARRATIVE: CASE EVENT DATE: 20161027
